FAERS Safety Report 19819531 (Version 1)
Quarter: 2021Q3

REPORT INFORMATION
  Report Type: Spontaneous
  Country: US (occurrence: US)
  Receive Date: 20210913
  Receipt Date: 20210913
  Transmission Date: 20211014
  Serious: Yes (Other)
  Sender: FDA-Public Use
  Company Number: US-SA-2021SA298607

PATIENT
  Age: 64 Year
  Sex: Male

DRUGS (2)
  1. LANTUS SOLOSTAR [Suspect]
     Active Substance: INSULIN GLARGINE
     Indication: DIABETES MELLITUS
     Dosage: 40 IU, 80 IU BID
     Route: 065
  2. HUMALOG [Concomitant]
     Active Substance: INSULIN LISPRO
     Dosage: UNK
     Route: 065

REACTIONS (7)
  - Wrong technique in product usage process [Unknown]
  - Lower respiratory tract infection [Unknown]
  - Inappropriate schedule of product administration [Unknown]
  - Coronary artery bypass [Unknown]
  - Blood glucose increased [Unknown]
  - Staphylococcal infection [Unknown]
  - Insulin resistance [Unknown]
